FAERS Safety Report 4706173-5 (Version None)
Quarter: 2005Q2

REPORT INFORMATION
  Report Type: 
  Country: None (occurrence: None)
  Receive Date: 20050204
  Receipt Date: 20050204
  Transmission Date: 20051028
  Serious: Yes (Other)
  Sender: FDA-Public Use
  Company Number: None

PATIENT
  Age: 13 Year
  Sex: Male
  Weight: 115.2136 kg

DRUGS (1)
  1. METHYLIN ER [Suspect]
     Indication: ATTENTION DEFICIT/HYPERACTIVITY DISORDER
     Dosage: TWO PO QAM + ONE QPM
     Dates: start: 19960101

REACTIONS (2)
  - DRUG INEFFECTIVE [None]
  - NO ADVERSE EFFECT [None]
